FAERS Safety Report 5353512-0 (Version None)
Quarter: 2007Q2

REPORT INFORMATION
  Report Type: 
  Country: None (occurrence: None)
  Receive Date: 20070612
  Receipt Date: 20070604
  Transmission Date: 20071010
  Serious: Yes (Hospitalization, Disabling)
  Sender: FDA-Public Use
  Company Number: TW-BAYER-200713105GDS

PATIENT
  Sex: Female

DRUGS (1)
  1. ASPIRIN [Suspect]
     Indication: HEADACHE
     Route: 048
     Dates: start: 20070518, end: 20070518

REACTIONS (1)
  - DEAFNESS UNILATERAL [None]
